FAERS Safety Report 14380567 (Version 3)
Quarter: 2018Q1

REPORT INFORMATION
  Report Type: Spontaneous
  Country: JP (occurrence: JP)
  Receive Date: 20180112
  Receipt Date: 20180202
  Transmission Date: 20180509
  Serious: Yes (Hospitalization, Other)
  Sender: FDA-Public Use
  Company Number: JP-SA-2018SA002670

PATIENT
  Age: 32 Year
  Sex: Female

DRUGS (7)
  1. CYSTEINE [Concomitant]
     Active Substance: CYSTEINE
     Route: 065
     Dates: end: 20170508
  2. ROXITHROMYCIN [Concomitant]
     Active Substance: ROXITHROMYCIN
     Route: 065
     Dates: start: 20170424, end: 20170508
  3. PREDNISOLONE. [Concomitant]
     Active Substance: PREDNISOLONE
     Route: 065
  4. LEVOCETIRIZINE [Suspect]
     Active Substance: LEVOCETIRIZINE
     Indication: URTICARIA
     Route: 048
     Dates: start: 20170424, end: 20170508
  5. TALION [Suspect]
     Active Substance: BEPOTASTINE
     Indication: URTICARIA
     Route: 048
     Dates: start: 20170424, end: 20170508
  6. FLAVINE ADENINE DINUCLEOTIDE [Concomitant]
     Route: 065
     Dates: end: 20170508
  7. CINAL [Concomitant]
     Active Substance: ASCORBIC ACID\CALCIUM PANTOTHENATE
     Route: 065
     Dates: end: 20170508

REACTIONS (10)
  - Decreased appetite [Recovered/Resolved]
  - Nausea [Recovered/Resolved]
  - Autoimmune hepatitis [Recovered/Resolved]
  - Cholestasis [Recovered/Resolved]
  - Nephrolithiasis [Recovering/Resolving]
  - Drug-induced liver injury [Recovered/Resolved]
  - Ascites [Recovering/Resolving]
  - Jaundice [Recovered/Resolved]
  - Hepatitis acute [Recovered/Resolved]
  - Malaise [Recovered/Resolved]

NARRATIVE: CASE EVENT DATE: 20170610
